FAERS Safety Report 7744310-9 (Version None)
Quarter: 2011Q3

REPORT INFORMATION
  Report Type: 
  Country: None (occurrence: None)
  Receive Date: 20110912
  Receipt Date: 20110907
  Transmission Date: 20111222
  Serious: No
  Sender: FDA-Public Use
  Company Number: US-TEVA-299863USA

PATIENT

DRUGS (1)
  1. PROAIR HFA [Suspect]
     Dosage: 2 INHALATIONS 4X PER DAY
     Dates: start: 20110901

REACTIONS (1)
  - DRUG INEFFECTIVE [None]
